FAERS Safety Report 7790313-8 (Version None)
Quarter: 2011Q3

REPORT INFORMATION
  Report Type: 
  Country: None (occurrence: None)
  Receive Date: 20110930
  Receipt Date: 20110921
  Transmission Date: 20111222
  Serious: Yes (Other)
  Sender: FDA-Public Use
  Company Number: US-BAYER-201039314NA

PATIENT
  Age: 44 Year
  Sex: Female
  Weight: 102 kg

DRUGS (7)
  1. YAZ [Suspect]
     Indication: CONTRACEPTION
     Dosage: UNK UNK, UNK
     Route: 048
     Dates: start: 20090101, end: 20100301
  2. ALIMENTARY TRACT AND METABOLISM [Concomitant]
     Dosage: UNK
     Dates: start: 20060101
  3. LEVOTHYROXINE [Concomitant]
     Dosage: UNK
     Dates: start: 20090928, end: 20100227
  4. CYMBALTA [Concomitant]
     Dosage: 120 MG, QD
     Route: 048
     Dates: start: 20090101, end: 20100101
  5. MIRALAX [Concomitant]
     Dosage: UNK UNK, QD
     Route: 048
  6. YASMIN [Suspect]
     Indication: CONTRACEPTION
     Dosage: UNK UNK, UNK
     Route: 048
     Dates: start: 20010401, end: 20090101
  7. OMEPRAZOLE [Concomitant]
     Dosage: 20 MG, QD
     Route: 048
     Dates: start: 20091015

REACTIONS (3)
  - CHOLECYSTITIS CHRONIC [None]
  - BILIARY DYSKINESIA [None]
  - GALLBLADDER INJURY [None]
